FAERS Safety Report 6373514-5 (Version None)
Quarter: 2009Q3

REPORT INFORMATION
  Report Type: 
  Country: None (occurrence: None)
  Receive Date: 20090924
  Receipt Date: 20090223
  Transmission Date: 20100115
  Serious: No
  Sender: FDA-Public Use
  Company Number: US-ASTRAZENECA-2009UW05113

PATIENT
  Age: 10 Year
  Sex: Male

DRUGS (2)
  1. SEROQUEL [Suspect]
     Route: 048
  2. VYANASE [Suspect]
     Dosage: UNKNOWN
     Route: 065

REACTIONS (3)
  - MUSCLE TWITCHING [None]
  - OROPHARYNGEAL PAIN [None]
  - PYREXIA [None]
